FAERS Safety Report 4727234-0 (Version None)
Quarter: 2005Q3

REPORT INFORMATION
  Report Type: 
  Country: None (occurrence: None)
  Receive Date: 20050726
  Receipt Date: 20040106
  Transmission Date: 20060218
  Serious: Yes (Hospitalization)
  Sender: FDA-Public Use
  Company Number: 04NOR0107 150

PATIENT
  Sex: Male

DRUGS (6)
  1. AGGRASTAT [Suspect]
     Indication: CORONARY ANGIOPLASTY
     Dates: start: 20031201, end: 20031202
  2. AGGRASTAT [Suspect]
     Dosage: INTRAVENOUS
     Route: 042
     Dates: start: 20031201, end: 20031202
  3. ZESTRIL [Concomitant]
  4. ZOCOR [Concomitant]
  5. ASPIRIN = MAGNESIUM OXIDE [Concomitant]
  6. CLOPIDOGREL BISULFATE [Concomitant]

REACTIONS (1)
  - THROMBOCYTOPENIA [None]
